FAERS Safety Report 21661846 (Version 1)
Quarter: 2022Q4

REPORT INFORMATION
  Report Type: Spontaneous
  Country: MY (occurrence: MY)
  Receive Date: 20221130
  Receipt Date: 20221130
  Transmission Date: 20230113
  Serious: Yes (Other)
  Sender: FDA-Public Use
  Company Number: MY-BAYER-2022A163849

PATIENT
  Age: 54 Year
  Sex: Male

DRUGS (2)
  1. EYLEA [Suspect]
     Active Substance: AFLIBERCEPT
     Indication: Polypoidal choroidal vasculopathy
     Dosage: 20 WEEKS, SOLUTION FOR INJECTION, 40MG/ML
     Dates: start: 2020
  2. EYLEA [Suspect]
     Active Substance: AFLIBERCEPT
     Dosage: EVERY 24 WEEKS, SOLUTION FOR INJECTION, 40MG/ML
     Dates: start: 202102

REACTIONS (2)
  - Retinal haemorrhage [Recovered/Resolved with Sequelae]
  - Inappropriate schedule of product administration [Unknown]

NARRATIVE: CASE EVENT DATE: 20200101
